FAERS Safety Report 7357882-3 (Version None)
Quarter: 2011Q1

REPORT INFORMATION
  Report Type: 
  Country: None (occurrence: None)
  Receive Date: 20110317
  Receipt Date: 20110307
  Transmission Date: 20110831
  Serious: Yes (Hospitalization)
  Sender: FDA-Public Use
  Company Number: IE-SANOFI-AVENTIS-200820439GDDC

PATIENT
  Age: 64 Year
  Sex: Male

DRUGS (8)
  1. BLINDED THERAPY [Suspect]
     Dates: start: 20050823, end: 20081027
  2. ASPIRIN [Concomitant]
     Dates: start: 20050701
  3. PLAVIX [Concomitant]
     Indication: PROPHYLAXIS
     Dates: start: 20050701
  4. METFORMIN HCL [Concomitant]
     Dates: start: 20081001, end: 20081001
  5. LIBRIUM ^ICN^ [Concomitant]
     Indication: ALCOHOL ABUSE
     Dates: start: 19990301
  6. INSULIN GLARGINE [Suspect]
     Indication: DIABETES MELLITUS
     Dosage: DOSE:50 UNIT(S)
     Route: 058
     Dates: start: 20060801, end: 20081027
  7. INSULIN GLARGINE [Suspect]
     Dosage: DOSE:22 UNIT(S)
     Route: 058
  8. OPTIPEN [Suspect]
     Indication: DIABETES MELLITUS

REACTIONS (2)
  - GASTROENTERITIS [None]
  - HYPOGLYCAEMIA [None]
